FAERS Safety Report 6430106-7 (Version None)
Quarter: 2009Q4

REPORT INFORMATION
  Report Type: 
  Country: None (occurrence: None)
  Receive Date: 20091106
  Receipt Date: 20091102
  Transmission Date: 20100525
  Serious: Yes (Life-Threatening)
  Sender: FDA-Public Use
  Company Number: NZ-ASTRAZENECA-2009SE23624

PATIENT
  Age: 55 Year
  Sex: Male

DRUGS (5)
  1. PROPOFOL [Suspect]
     Route: 042
     Dates: start: 20040824, end: 20040824
  2. LIGNOCAINE [Suspect]
     Dates: start: 20040824, end: 20040824
  3. REMIFENTANIL [Suspect]
     Route: 042
     Dates: start: 20040824, end: 20040824
  4. ROCURONIUM BROMIDE [Suspect]
     Route: 042
     Dates: start: 20040824, end: 20040824
  5. CYCLOPHOSPHAMIDE [Concomitant]
     Route: 048

REACTIONS (2)
  - HYPOTENSION [None]
  - RASH ERYTHEMATOUS [None]
